FAERS Safety Report 6335357-8 (Version None)
Quarter: 2009Q3

REPORT INFORMATION
  Report Type: 
  Country: None (occurrence: None)
  Receive Date: 20090831
  Receipt Date: 20090819
  Transmission Date: 20100115
  Serious: Yes (Hospitalization)
  Sender: FDA-Public Use
  Company Number: IT-ELI_LILLY_AND_COMPANY-IT200908004382

PATIENT
  Sex: Female

DRUGS (8)
  1. CYMBALTA [Suspect]
     Dosage: UNK, UNKNOWN
     Route: 065
     Dates: start: 20060101, end: 20090417
  2. GARDENALE [Concomitant]
     Dosage: UNK, UNKNOWN
     Route: 065
  3. GARDENALE [Concomitant]
     Dosage: UNK, UNKNOWN (REDUCED DOSE)
     Route: 065
  4. TEGRETOL [Concomitant]
     Dosage: UNK, UNKNOWN
     Route: 065
  5. TEGRETOL [Concomitant]
     Dosage: UNK, UNKNOWN (REDUCED DOSE)
     Route: 065
  6. CALCIUM CHANNEL BLOCKERS [Concomitant]
     Dosage: UNK, UNKNOWN
     Route: 065
  7. DIURETICS [Concomitant]
     Dosage: UNK, UNKNOWN
     Route: 065
  8. ACE INHIBITOR NOS [Concomitant]
     Dosage: UNK, UNKNOWN
     Route: 065

REACTIONS (2)
  - CATHETER SEPSIS [None]
  - PARTIAL SEIZURES [None]
